FAERS Safety Report 14162541 (Version 4)
Quarter: 2017Q4

REPORT INFORMATION
  Report Type: Report from Study
  Country: US (occurrence: US)
  Receive Date: 20171106
  Receipt Date: 20171225
  Transmission Date: 20180321
  Serious: No
  Sender: FDA-Public Use
  Company Number: US-B.I. PHARMACEUTICALS,INC./RIDGEFIELD-2017-BI-058932

PATIENT
  Age: 78 Year
  Sex: Male

DRUGS (4)
  1. OFEV [Suspect]
     Active Substance: NINTEDANIB
     Route: 048
  2. VITAMIN E [Concomitant]
     Active Substance: .ALPHA.-TOCOPHEROL
     Indication: PRODUCT USED FOR UNKNOWN INDICATION
     Route: 065
  3. OFEV [Suspect]
     Active Substance: NINTEDANIB
     Indication: IDIOPATHIC PULMONARY FIBROSIS
     Route: 048
     Dates: start: 20171028
  4. OFEV [Suspect]
     Active Substance: NINTEDANIB
     Route: 048
     Dates: start: 20171121

REACTIONS (7)
  - Haemoptysis [Recovered/Resolved]
  - Nasopharyngitis [Unknown]
  - Abdominal discomfort [Unknown]
  - Dysphonia [Unknown]
  - Cough [Unknown]
  - Oxygen saturation decreased [Unknown]
  - Dyspnoea [Unknown]

NARRATIVE: CASE EVENT DATE: 20171030
